FAERS Safety Report 12346704 (Version 1)
Quarter: 2016Q2

REPORT INFORMATION
  Report Type: Spontaneous
  Country: US (occurrence: US)
  Receive Date: 20160509
  Receipt Date: 20160509
  Transmission Date: 20160815
  Serious: No
  Sender: FDA-Public Use
  Company Number: US-BAYER-2016-088667

PATIENT
  Age: 67 Year
  Sex: Male
  Weight: 71.2 kg

DRUGS (4)
  1. LOVASTATIN. [Concomitant]
     Active Substance: LOVASTATIN
     Indication: EAR PAIN
     Dosage: 1 DF, QD
     Route: 048
  2. LOVASTATIN. [Concomitant]
     Active Substance: LOVASTATIN
     Indication: OTORRHOEA
  3. BAYER LOW DOSE [Concomitant]
     Active Substance: ASPIRIN
     Indication: ISCHAEMIC HEART DISEASE PROPHYLAXIS
     Dosage: 1 DF, QD
     Route: 048
  4. CLARITIN [Suspect]
     Active Substance: LORATADINE
     Indication: EAR PAIN
     Dosage: 1 DF, QD
     Route: 048

REACTIONS (1)
  - Off label use [None]

NARRATIVE: CASE EVENT DATE: 20160506
